FAERS Safety Report 8133200-8 (Version None)
Quarter: 2012Q1

REPORT INFORMATION
  Report Type: 
  Country: None (occurrence: None)
  Receive Date: 20120207
  Receipt Date: 20120123
  Transmission Date: 20120608
  Serious: Yes (Hospitalization)
  Sender: FDA-Public Use
  Company Number: THQ2010A03103

PATIENT
  Age: 11 Year
  Sex: Male

DRUGS (45)
  1. PHENOBARBITAL TAB [Suspect]
     Dosage: 100 MG (50 MG, 2 IN 1 D) PER ORAL
     Route: 048
     Dates: start: 20100622, end: 20100709
  2. RISPERDAL [Suspect]
     Dosage: 0.3 ML (0.3 ML, 1 IN 1 D) PER ORAL
     Route: 048
     Dates: start: 20100702, end: 20100714
  3. EPINEPHRINE [Suspect]
     Dosage: 10 MG (UID/QD) INTRAVENOUS DRIP
     Route: 041
     Dates: start: 20100621, end: 20100621
  4. NICARDIPINE HYDROCHLORIDE [Suspect]
     Dosage: INTRAVENOUS DRIP
     Route: 041
  5. DEXMEDETOMIDINE HYDROCHLORIDE [Suspect]
     Dosage: INTRAVENOUS DRIP
     Route: 041
     Dates: start: 20100704, end: 20100705
  6. PIPERACILLIN SODIUM [Suspect]
     Dosage: 1500 MG (375 MG, 4 IN 1 D) INTRAVENOUS DRIP
     Route: 041
     Dates: start: 20100715, end: 20100716
  7. LASIX [Suspect]
     Dosage: 10 MG (2.5 MG, 4 IN 1 D) PER ORAL
     Route: 048
     Dates: start: 20100626, end: 20100706
  8. CALCIUM GLUCONATE [Suspect]
     Dosage: 10 ML (UID/QD) INTRAVENOUS DRIP
     Route: 041
     Dates: start: 20100621, end: 20100721
  9. XYLOCAINE [Suspect]
     Dosage: 10 ML (10 ML, 1 IN 1 D) INTRAVENOUS DRIP
     Route: 041
     Dates: start: 20100621, end: 20100709
  10. ACETAMINOPHEN [Suspect]
     Dosage: RECTAL
     Dates: start: 20100630, end: 20100716
  11. AMPICILLIN [Suspect]
     Dosage: 375 MG (375 MG, 1 IN 1 D)
     Dates: start: 20100715, end: 20100716
  12. CLINDAMYCIN PHOSPHATE [Suspect]
     Dosage: 300 MG (100 MG, 3 IN 1 D) INTRAVENOUS DRIP
     Route: 041
     Dates: start: 20100608, end: 20100710
  13. OFLOXACIN [Suspect]
     Dosage: OPHTHALMIC
     Route: 047
     Dates: start: 20100728, end: 20100729
  14. DIAZEPAM [Suspect]
     Dosage: 5 MG PER ORAL; 4 ML PER ORAL
     Route: 048
     Dates: start: 20100622, end: 20100701
  15. DIAZEPAM [Suspect]
     Dosage: 5 MG PER ORAL; 4 ML PER ORAL
     Route: 048
     Dates: start: 20100702, end: 20100722
  16. ROCEPHIN [Suspect]
     Indication: INFECTION
     Dosage: 200 MG (200 MG, 1 IN 1 D) INTRAVENOUS DRIP
     Route: 041
     Dates: start: 20100630, end: 20100707
  17. BIOFERMIN R (STREPTOCOCCUS FAECALIS) [Suspect]
     Dosage: 1 GM PER ORAL
     Route: 048
     Dates: start: 20100711, end: 20100718
  18. HEPARIN SODIUM [Suspect]
     Dosage: 5 IU/KG (UID/QD) INTRAVENOUS DRIP
     Route: 041
     Dates: start: 20100808, end: 20100812
  19. DECADRON [Suspect]
     Dosage: 2 MG INTRAVENOUS DRIP
     Route: 041
     Dates: start: 20100617, end: 20100622
  20. ROCURONIUM BROMIDE [Suspect]
     Dosage: 50 MG (50 MG, 1 IN 1 D) INTRAVENOUS DRIP
     Route: 041
     Dates: start: 20100617, end: 20100706
  21. LANSOPRAZOLE [Suspect]
     Dosage: 15 MG (7.5 MG, 2 IN 1 D) PER ORAL
     Route: 048
     Dates: start: 20100628, end: 20100728
  22. CEFAZOLIN SODIUM [Suspect]
     Dosage: 1000 MG (500 MG, 2 IN 1 D) INTRAVENOUS DRIP
     Route: 041
     Dates: start: 20100622, end: 20100624
  23. LACTOBACILLUS ACIDOPHILUS, BACILLUS SUBTILIS, STREPTOCOCCUS FAECALIS [Suspect]
     Dosage: 1 GM PER ORAL
     Route: 048
     Dates: start: 20100711, end: 20100718
  24. HEPARIN SODIUM [Suspect]
     Dosage: 2 DF (UID/QD) INTRAVENOUS DRIP
     Route: 041
     Dates: start: 20100617
  25. ATROPINE SULFATE [Suspect]
     Dosage: 0.5 MG (UID/QD) INTRAVENOUS DRIP
     Route: 041
     Dates: start: 20100617, end: 20100622
  26. PANTHENOL [Suspect]
     Dosage: 50 MG (25 MG, 2 IN 1 D) INTRAVENOUS DRIP
     Route: 041
     Dates: start: 20100604, end: 20100709
  27. LACTOBACILLUS CASEI [Suspect]
     Dosage: 500 MG PER ORAL
     Route: 048
     Dates: start: 20100702, end: 20100709
  28. FLURBIPROFEN [Suspect]
     Dosage: 3.5 ML (3.5 ML, 1 IN 1 D) INTRAVENOUS DRIP
     Route: 043
     Dates: start: 20100709, end: 20100709
  29. HYALEIN (HYALURONATE SODIUM) [Suspect]
     Dosage: OPTHALMIC
     Route: 047
     Dates: start: 20100723, end: 20100821
  30. MORPHINE HYDROCHLORIDE (MORPHINE HYDROCHLORIDE) [Suspect]
     Dosage: 2 MG/KG (2 MG/KG, 1 IN 1 D) INTRAVENOUS DRIP
     Route: 041
     Dates: start: 20100621, end: 20100709
  31. ATARAX [Suspect]
     Dosage: 25 MG (25 MG, 1 IN 1 D) INTRAVENOUS DRIP
     Route: 041
     Dates: start: 20100709, end: 20100709
  32. DEPAS (ETIZOLAM) [Suspect]
     Dosage: 1 DF (UID/QD) PER ORAL
     Route: 048
     Dates: start: 20100701, end: 20100701
  33. ULTIVA [Suspect]
     Dosage: INTRAVENOUS DRIP
     Route: 041
     Dates: start: 20100621, end: 20100708
  34. GLYCEROL 2.6% [Suspect]
     Indication: CONSTIPATION
     Dosage: RECTAL
     Route: 054
     Dates: start: 20100627
  35. ALDACTONE [Suspect]
     Dosage: 10 MG (2.5 MG, 4 IN 1 D) PER ORAL
     Route: 048
     Dates: start: 20100626, end: 20100706
  36. FAMOTIDINE [Suspect]
     Dosage: 15 MG (1 D) PER ORAL; 6 MG (8 MG, 2 IN 1 D)  INTRAVENOUS DRIP
     Route: 048
     Dates: start: 20100626, end: 20100715
  37. FAMOTIDINE [Suspect]
     Dosage: 15 MG (1 D) PER ORAL; 6 MG (8 MG, 2 IN 1 D)  INTRAVENOUS DRIP
     Route: 048
     Dates: start: 20100617, end: 20100626
  38. MIDAZOLAM HYDROCHLORIDE [Suspect]
     Dosage: 10 MG (10 MG, 1 IN 1 D) INTRAVENOUS DRIP; 10 MG (UID/QD) INTRAVENOUS DRIP
     Route: 041
     Dates: start: 20100621, end: 20100621
  39. MIDAZOLAM HYDROCHLORIDE [Suspect]
     Dosage: 10 MG (10 MG, 1 IN 1 D) INTRAVENOUS DRIP; 10 MG (UID/QD) INTRAVENOUS DRIP
     Route: 041
     Dates: start: 20100617, end: 20100709
  40. ACETAMINOPHEN [Suspect]
     Indication: PYREXIA
     Dosage: 300 MG (300 MG, 1 IN 1 D) PER ORAL
     Route: 048
     Dates: start: 20100627, end: 20100716
  41. TRICLORYL (TRICLOFOS SODIUM) [Suspect]
     Dosage: 20 ML (UID/QD) PER ORAL
     Route: 048
     Dates: start: 20100628, end: 20100705
  42. LAXOBERON (SODIUM PICOSULFATE) [Suspect]
     Dosage: 10 ML (UID/QD) PER ORAL
     Route: 048
     Dates: start: 20100620, end: 20100620
  43. OMEPRAZOLE [Suspect]
     Dosage: 15 MG (7.5 MG, 2 IN 1 D) INTRAVENOUS DRIP
     Route: 041
     Dates: start: 20100716, end: 20100721
  44. GLYCEROL (GLYCEROL, FRUCTOSE) [Suspect]
     Dosage: 200 ML INTRAVENOUS DRIP
     Route: 041
     Dates: start: 20100617, end: 20100618
  45. FENTANYL [Suspect]
     Dosage: INTRAVENOUS DRIP
     Route: 041
     Dates: start: 20100621, end: 20100708

REACTIONS (4)
  - DRUG RASH WITH EOSINOPHILIA AND SYSTEMIC SYMPTOMS [None]
  - LYMPHOCYTE STIMULATION TEST POSITIVE [None]
  - INFECTION [None]
  - CONSTIPATION [None]
